FAERS Safety Report 5274578-2 (Version None)
Quarter: 2007Q1

REPORT INFORMATION
  Report Type: 
  Country: None (occurrence: None)
  Receive Date: 20070323
  Receipt Date: 20070314
  Transmission Date: 20070707
  Serious: Yes (Other)
  Sender: FDA-Public Use
  Company Number: US-PFIZER INC-2007021823

PATIENT
  Sex: Female
  Weight: 79.4 kg

DRUGS (5)
  1. CHANTIX [Suspect]
     Indication: SMOKING CESSATION THERAPY
  2. ABILIFY [Suspect]
     Indication: BIPOLAR DISORDER
  3. TRILEPTAL [Concomitant]
  4. IBUPROFEN [Concomitant]
  5. MIRALAX [Concomitant]

REACTIONS (3)
  - BIPOLAR DISORDER [None]
  - FEELING ABNORMAL [None]
  - HEART RATE INCREASED [None]
